FAERS Safety Report 23343491 (Version 2)
Quarter: 2024Q1

REPORT INFORMATION
  Report Type: Spontaneous
  Country: US (occurrence: US)
  Receive Date: 20231227
  Receipt Date: 20240108
  Transmission Date: 20240409
  Serious: No
  Sender: FDA-Public Use
  Company Number: US-PFIZER INC-202300448348

PATIENT
  Age: 41 Year
  Sex: Female

DRUGS (1)
  1. IBRANCE [Suspect]
     Active Substance: PALBOCICLIB
     Dosage: 125 MG, DAILY (125 MG TABLETS - 1 TABLET DAILY AT THE SAME TIME ON DAYS 1 THROUGH 21 OF EACH 28 DAY
     Dates: start: 20231116

REACTIONS (1)
  - Full blood count decreased [Unknown]
